FAERS Safety Report 23133130 (Version 3)
Quarter: 2024Q1

REPORT INFORMATION
  Report Type: Spontaneous
  Country: GB (occurrence: GB)
  Receive Date: 20231101
  Receipt Date: 20240109
  Transmission Date: 20240410
  Serious: Yes (Other)
  Sender: FDA-Public Use
  Company Number: GB-CIPLA (EU) LIMITED-2023GB06736

PATIENT

DRUGS (4)
  1. TENOFOVIR [Suspect]
     Active Substance: TENOFOVIR
     Indication: HIV infection
     Dosage: 1 DOSAGE FORM, QD (1 TAB/CAPS, 1 COURSE) ((CUMULATIVE DOSAGE TO FIRST REACTION WAS 2193 DOSAGE FORM)
     Route: 048
     Dates: start: 20160823
  2. ISENTRESS [Suspect]
     Active Substance: RALTEGRAVIR POTASSIUM
     Indication: HIV infection
     Dosage: 800 MILLIGRAM, QD
     Route: 048
     Dates: start: 20160823
  3. LOPINAVIR\RITONAVIR [Suspect]
     Active Substance: LOPINAVIR\RITONAVIR
     Indication: HIV infection
     Dosage: 4 DOSAGE FORM, QD (1 COURSE, 4 TABS/CAPS) (CUMULATIVE DOSAGE TO FIRST REACTION WAS 8772 DOSAGE FORM)
     Route: 048
     Dates: start: 20160823
  4. MARAVIROC [Suspect]
     Active Substance: MARAVIROC
     Indication: HIV infection
     Dosage: 300 MILLIGRAM, QD (CUMULATIVE DOSAGE TO FIRST REACTION WAS 657900 DOSAGE FORM)
     Route: 048
     Dates: start: 20160823

REACTIONS (2)
  - Abortion spontaneous [Unknown]
  - Exposure during pregnancy [Unknown]

NARRATIVE: CASE EVENT DATE: 20220825
